FAERS Safety Report 11044985 (Version 4)
Quarter: 2016Q1

REPORT INFORMATION
  Report Type: Spontaneous
  Country: US (occurrence: US)
  Receive Date: 20150417
  Receipt Date: 20160224
  Transmission Date: 20160525
  Serious: Yes (Hospitalization)
  Sender: FDA-Public Use
  Company Number: US-PFIZER INC-2015128904

PATIENT
  Age: 64 Year
  Sex: Female
  Weight: 111 kg

DRUGS (18)
  1. LYRICA [Suspect]
     Active Substance: PREGABALIN
     Dosage: 150 MG, 3X/DAY (2 CAPSULE IN THE MORNING AND ONE IN THE EVENING)
     Route: 048
     Dates: start: 20160104
  2. WELLBUTRIN SR [Concomitant]
     Active Substance: BUPROPION HYDROCHLORIDE
     Dosage: 150 MG, 2X/DAY
     Route: 048
  3. LIPITOR [Concomitant]
     Active Substance: ATORVASTATIN CALCIUM
     Dosage: 20 MG, 1X/DAY (EVERY EVENING)
     Route: 048
  4. LYRICA [Suspect]
     Active Substance: PREGABALIN
     Indication: NEUROPATHY PERIPHERAL
     Dosage: 50 MG, UNK
  5. QUESTRAN [Concomitant]
     Active Substance: CHOLESTYRAMINE
     Indication: DIARRHOEA
     Dosage: 4 G, 2X/DAY (AS NEEDED )
     Route: 048
  6. XANAX [Concomitant]
     Active Substance: ALPRAZOLAM
     Indication: ANXIETY
     Dosage: 1 MG, 3X/DAY (AS NEEDED)
     Route: 048
  7. VOLTAREN [Concomitant]
     Active Substance: DICLOFENAC SODIUM
     Dosage: GEL 1 % APPLY 2 G, 4X/DAY
     Route: 061
  8. TYLENOL [Concomitant]
     Active Substance: ACETAMINOPHEN
     Indication: PAIN
     Dosage: 1000 MG, 4X/DAY (EVERY 6 HOURS AS NEEDED)
     Route: 048
  9. FLONASE [Concomitant]
     Active Substance: FLUTICASONE PROPIONATE
     Dosage: 50 MCG/ACT PLACE 2 SPRAYS IN EACH NOSTRIL DAILY
     Route: 045
  10. NORCO [Concomitant]
     Active Substance: ACETAMINOPHEN\HYDROCODONE BITARTRATE
     Indication: PAIN
     Dosage: [HYDROCODONE BITARTRATE10 MG/PARACETAMOL 325 MG] EVERY 6 HOURS AS NEEDED
     Route: 048
  11. BUSPAR [Concomitant]
     Active Substance: BUSPIRONE HYDROCHLORIDE
     Dosage: 30 MG, 2X/DAY
     Route: 048
  12. OSCAL D [Concomitant]
     Active Substance: CALCIUM CARBONATE\CHOLECALCIFEROL
     Dosage: [CALCIUM CARBONATE 250 MG UNIT/VITAMIN D NOS125 MG UNIT] 3 DF, 2X/DAY
     Route: 048
  13. MAG-OX [Concomitant]
     Active Substance: MAGNESIUM OXIDE
     Dosage: 400 MG, 1X/DAY
     Route: 048
  14. COUMADIN [Concomitant]
     Active Substance: WARFARIN SODIUM
     Dosage: 300 MG, DAILY (THEN ADJUST BASED ON INK)
  15. LYRICA [Suspect]
     Active Substance: PREGABALIN
     Indication: DIABETIC COMPLICATION
     Dosage: 20 MG, 3X/DAY
  16. VITAMIN C [Concomitant]
     Active Substance: ASCORBIC ACID
     Dosage: 500 MG, DAILY
     Route: 048
  17. QUESTRAN [Concomitant]
     Active Substance: CHOLESTYRAMINE
     Indication: CLOSTRIDIUM DIFFICILE COLITIS
  18. PRILOSEC [Concomitant]
     Active Substance: OMEPRAZOLE MAGNESIUM
     Dosage: 20 MG, 1X/DAY EVERY MORNING BEFORE BREAKFAST
     Route: 048

REACTIONS (7)
  - Clostridium difficile colitis [Not Recovered/Not Resolved]
  - Pneumonia [Recovered/Resolved]
  - Disease recurrence [Not Recovered/Not Resolved]
  - Fall [Recovered/Resolved]
  - Malaise [Recovered/Resolved]
  - Head injury [Recovered/Resolved]
  - Overdose [Unknown]

NARRATIVE: CASE EVENT DATE: 20160104
